FAERS Safety Report 5524254-3 (Version None)
Quarter: 2007Q4

REPORT INFORMATION
  Report Type: 
  Country: None (occurrence: None)
  Receive Date: 20071121
  Receipt Date: 20071114
  Transmission Date: 20080405
  Serious: Yes (Other)
  Sender: FDA-Public Use
  Company Number: GB-PFIZER INC-2007094130

PATIENT
  Age: 40 Year
  Sex: Male

DRUGS (1)
  1. CHAMPIX [Suspect]
     Route: 048

REACTIONS (1)
  - FALL [None]
